FAERS Safety Report 7425736-X (Version None)
Quarter: 2011Q2

REPORT INFORMATION
  Report Type: 
  Country: None (occurrence: None)
  Receive Date: 20110420
  Receipt Date: 20110411
  Transmission Date: 20111010
  Serious: Yes (Life-Threatening, Other)
  Sender: FDA-Public Use
  Company Number: JP-BRISTOL-MYERS SQUIBB COMPANY-15677974

PATIENT
  Age: 73 Year
  Sex: Male
  Weight: 67 kg

DRUGS (4)
  1. ERBITUX [Suspect]
     Indication: COLON CANCER
     Dosage: 3MAR11:712MG ONCE DAILY 3-3MAR11:716MG 1 IN 1 WK 10-10MAR11:448MG 1 IN 1 WK
     Route: 042
     Dates: start: 20110303, end: 20110310
  2. OXALIPLATIN [Suspect]
     Indication: COLON CANCER
     Route: 042
     Dates: start: 20110303, end: 20110303
  3. CALCIUM LEVOFOLINATE [Suspect]
     Indication: COLON CANCER
     Route: 042
     Dates: start: 20110303, end: 20110303
  4. FLUOROURACIL [Suspect]
     Indication: COLON CANCER
     Dosage: 4299MG:IV BOLUS 3-3MAR2011 716MG:IV DRIP 3-5MAR2011
     Route: 041
     Dates: start: 20110303, end: 20110305

REACTIONS (3)
  - PLATELET COUNT DECREASED [None]
  - WHITE BLOOD CELL COUNT DECREASED [None]
  - ENCEPHALITIC INFECTION [None]
